FAERS Safety Report 9290875 (Version 1)
Quarter: 2013Q2

REPORT INFORMATION
  Report Type: Spontaneous
  Country: US (occurrence: US)
  Receive Date: 20130515
  Receipt Date: 20130515
  Transmission Date: 20140414
  Serious: No
  Sender: FDA-Public Use
  Company Number: US-TEVA-404200USA

PATIENT
  Age: 76 Year
  Sex: Female

DRUGS (2)
  1. QNASL [Suspect]
     Indication: HYPERSENSITIVITY
  2. CLARITIN [Concomitant]

REACTIONS (1)
  - Headache [Unknown]
